FAERS Safety Report 4623948-1 (Version None)
Quarter: 2005Q1

REPORT INFORMATION
  Report Type: 
  Country: None (occurrence: None)
  Receive Date: 20050331
  Receipt Date: 20050315
  Transmission Date: 20050727
  Serious: Yes (Other)
  Sender: FDA-Public Use
  Company Number: BR-ROCHE-398876

PATIENT
  Age: 25 Year
  Sex: Female
  Weight: 56 kg

DRUGS (5)
  1. TORADOL [Suspect]
     Indication: SURGERY
     Dosage: DOSAGE REGIMEN REPORTED AS 30MG.
     Route: 065
     Dates: start: 20050305, end: 20050305
  2. DIPYRONE [Concomitant]
     Indication: SURGERY
     Dosage: DOSAGE REGIMEN REPORTED AS 1MG.
     Dates: start: 20050305, end: 20050305
  3. ALFENTANIL [Concomitant]
     Indication: SURGERY
     Dosage: DOSAGE REGIMEN REPORTED AS 1MG.
     Dates: start: 20050305, end: 20050305
  4. PROPOFOL [Concomitant]
     Indication: SURGERY
     Dosage: DOSAGE REGIMEN REPORTED AS 120MG.
     Dates: start: 20050305, end: 20050305
  5. PURAN T4 [Concomitant]
     Indication: HYPOTHYROIDISM

REACTIONS (3)
  - BLOOD PRESSURE DECREASED [None]
  - DYSPNOEA [None]
  - HYPERSENSITIVITY [None]
